FAERS Safety Report 10527186 (Version 1)
Quarter: 2014Q4

REPORT INFORMATION
  Report Type: Spontaneous
  Country: UA (occurrence: UA)
  Receive Date: 20141020
  Receipt Date: 20141020
  Transmission Date: 20150528
  Serious: Yes (Other)
  Sender: FDA-Public Use
  Company Number: UA-ROCHE-1476900

PATIENT
  Age: 77 Year
  Sex: Female
  Weight: 78 kg

DRUGS (3)
  1. ENALAPRIL [Concomitant]
     Active Substance: ENALAPRIL
  2. LUCENTIS [Suspect]
     Active Substance: RANIBIZUMAB
     Indication: MACULAR OEDEMA
     Route: 050
     Dates: start: 20140930
  3. LUCENTIS [Suspect]
     Active Substance: RANIBIZUMAB
     Indication: RETINOPATHY

REACTIONS (1)
  - Endophthalmitis [Not Recovered/Not Resolved]

NARRATIVE: CASE EVENT DATE: 20141010
